FAERS Safety Report 10279811 (Version 1)
Quarter: 2014Q3

REPORT INFORMATION
  Report Type: Spontaneous
  Country: US (occurrence: None)
  Receive Date: 20140702
  Receipt Date: 20140702
  Transmission Date: 20150326
  Serious: Yes (Hospitalization)
  Sender: FDA-Public Use
  Company Number: None

PATIENT
  Age: 78 Year
  Sex: Male
  Weight: 84 kg

DRUGS (8)
  1. NORCO [Concomitant]
     Active Substance: ACETAMINOPHEN\HYDROCODONE BITARTRATE
  2. LISINOPRIL. [Concomitant]
     Active Substance: LISINOPRIL
  3. ZOCOR [Concomitant]
     Active Substance: SIMVASTATIN
  4. NORTRIPTYLINE [Concomitant]
     Active Substance: NORTRIPTYLINE
  5. REMERON [Concomitant]
     Active Substance: MIRTAZAPINE
  6. FLOMAX [Concomitant]
     Active Substance: TAMSULOSIN HYDROCHLORIDE
  7. TRAZODONE [Concomitant]
     Active Substance: TRAZODONE HYDROCHLORIDE
  8. TICE BCG [Suspect]
     Active Substance: BACILLUS CALMETTE-GUERIN SUBSTRAIN TICE LIVE ANTIGEN
     Dosage: TOTAL DOSE ADMINISTERED 50 MG
     Dates: end: 20140529

REACTIONS (10)
  - Cough [None]
  - Heart rate increased [None]
  - Condition aggravated [None]
  - Dyspnoea [None]
  - Pneumonia [None]
  - Sputum discoloured [None]
  - Bacterial test positive [None]
  - Lung infiltration [None]
  - Feeling abnormal [None]
  - Sputum increased [None]

NARRATIVE: CASE EVENT DATE: 20140603
